FAERS Safety Report 7157336-3 (Version None)
Quarter: 2010Q4

REPORT INFORMATION
  Report Type: 
  Country: None (occurrence: None)
  Receive Date: 20101214
  Receipt Date: 20101202
  Transmission Date: 20110411
  Serious: No
  Sender: FDA-Public Use
  Company Number: US-PFIZER INC-2010139386

PATIENT
  Sex: Female

DRUGS (3)
  1. NEURONTIN [Suspect]
     Dosage: UNK
  2. LYRICA [Suspect]
     Dosage: UNK
  3. OXYCODONE [Suspect]
     Dosage: UNK

REACTIONS (2)
  - DRUG EFFECT DECREASED [None]
  - FEELING ABNORMAL [None]
